FAERS Safety Report 15490576 (Version 1)
Quarter: 2018Q4

REPORT INFORMATION
  Report Type: Report from Study
  Country: None (occurrence: TW)
  Receive Date: 20181011
  Receipt Date: 20181011
  Transmission Date: 20190205
  Serious: Yes (Life-Threatening, Hospitalization)
  Sender: FDA-Public Use
  Company Number: TW-ABBVIE-17P-153-2099272-00

PATIENT
  Age: 67 Year
  Sex: Female
  Weight: 52.5 kg

DRUGS (16)
  1. VENETOCLAX. [Suspect]
     Active Substance: VENETOCLAX
     Route: 048
     Dates: start: 20170725, end: 20170824
  2. DEXAMETHASONE. [Suspect]
     Active Substance: DEXAMETHASONE
     Indication: PLASMA CELL MYELOMA
     Dosage: DAYS 1,2,4,5,8,9,11, AND 12 OF EACH 21-DAY CYCLE FOR CYCLES 1-8
     Route: 048
     Dates: start: 20170607, end: 20170708
  3. POTASSIUM PHOSPHATE [Concomitant]
     Active Substance: POTASSIUM PHOSPHATE
     Indication: HYPOKALAEMIA
     Route: 041
     Dates: start: 20170911
  4. VENETOCLAX. [Suspect]
     Active Substance: VENETOCLAX
     Indication: PLASMA CELL MYELOMA
     Route: 048
     Dates: start: 20170606, end: 20170717
  5. VENETOCLAX. [Suspect]
     Active Substance: VENETOCLAX
     Route: 048
     Dates: start: 20170829, end: 20170912
  6. ATORVASTATIN [Concomitant]
     Active Substance: ATORVASTATIN
     Indication: HYPERLIPIDAEMIA
     Route: 048
     Dates: start: 20160222
  7. BORTEZOMIB. [Suspect]
     Active Substance: BORTEZOMIB
     Indication: PLASMA CELL MYELOMA
     Dosage: DAYS 1, 4, 8, AND 11 OF EACH 21-DAY CYCLE FOR CYCLES 1-8
     Route: 058
     Dates: start: 20170607, end: 20170707
  8. LINAGLIPTIN [Concomitant]
     Active Substance: LINAGLIPTIN
     Indication: DIABETES MELLITUS
     Route: 048
     Dates: start: 20150406
  9. DIPYRIDAMOLE. [Concomitant]
     Active Substance: DIPYRIDAMOLE
     Indication: HYPERTENSION
     Route: 048
     Dates: start: 20160222
  10. DEXAMETHASONE. [Suspect]
     Active Substance: DEXAMETHASONE
     Dosage: DAYS 1,2,4,5,8,9,11, AND 12 OF EACH 21-DAY CYCLE FOR CYCLES 1-8
     Route: 048
     Dates: start: 20170725, end: 20170909
  11. SMECTITE [Concomitant]
     Active Substance: MONTMORILLONITE
     Indication: DIARRHOEA
     Route: 048
     Dates: start: 20170624
  12. GLIMEPIRIDE W/METFORMIN [Concomitant]
     Active Substance: GLIMEPIRIDE\METFORMIN
     Indication: DIABETES MELLITUS
     Route: 048
     Dates: start: 20130424
  13. METFORMIN [Concomitant]
     Active Substance: METFORMIN HYDROCHLORIDE
     Indication: DIABETES MELLITUS
     Route: 048
     Dates: start: 20160222
  14. BORTEZOMIB. [Suspect]
     Active Substance: BORTEZOMIB
     Dosage: DAYS 1, 4, 8, AND 11 OF EACH 21-DAY CYCLE FOR CYCLES 1-8
     Route: 058
     Dates: start: 20170725, end: 20170908
  15. ACYCLOVIR. [Concomitant]
     Active Substance: ACYCLOVIR
     Indication: ANTIVIRAL PROPHYLAXIS
     Route: 048
     Dates: start: 20170604, end: 20170919
  16. AMLODIPINE BESILATE W/TELMISARTAN [Concomitant]
     Active Substance: AMLODIPINE BESYLATE\TELMISARTAN
     Indication: HYPERTENSION
     Dosage: (5/80) MG
     Route: 048
     Dates: start: 20160222

REACTIONS (1)
  - Influenza [Recovered/Resolved]

NARRATIVE: CASE EVENT DATE: 20170911
